FAERS Safety Report 7956536-X (Version None)
Quarter: 2011Q4

REPORT INFORMATION
  Report Type: 
  Country: None (occurrence: None)
  Receive Date: 20111205
  Receipt Date: 20111122
  Transmission Date: 20120403
  Serious: Yes (Other)
  Sender: FDA-Public Use
  Company Number: US-JNJFOC-20111110946

PATIENT
  Age: 23 Year
  Sex: Male
  Weight: 70.31 kg

DRUGS (1)
  1. LISTERINE ORIGINAL [Suspect]
     Indication: ALCOHOL USE
     Dosage: ^ALL THE TIME^
     Route: 048

REACTIONS (6)
  - PRODUCT QUALITY ISSUE [None]
  - FAECES DISCOLOURED [None]
  - DRUG DEPENDENCE [None]
  - INCORRECT ROUTE OF DRUG ADMINISTRATION [None]
  - OFF LABEL USE [None]
  - LOSS OF CONSCIOUSNESS [None]
